FAERS Safety Report 23444404 (Version 1)
Quarter: 2024Q1

REPORT INFORMATION
  Report Type: Report from Study
  Country: AR (occurrence: AR)
  Receive Date: 20240125
  Receipt Date: 20240125
  Transmission Date: 20240410
  Serious: Yes (Hospitalization)
  Sender: FDA-Public Use
  Company Number: AR-ELI_LILLY_AND_COMPANY-AR202401011636

PATIENT
  Age: 71 Year
  Sex: Female

DRUGS (1)
  1. VERZENIO [Suspect]
     Active Substance: ABEMACICLIB
     Indication: Breast cancer metastatic
     Dosage: 100 MG, BID
     Route: 048
     Dates: start: 20220520, end: 20231120

REACTIONS (4)
  - Thrombosis [Recovered/Resolved]
  - Anaemia [Recovered/Resolved]
  - Anxiety [Unknown]
  - Negative thoughts [Unknown]

NARRATIVE: CASE EVENT DATE: 20240107
